FAERS Safety Report 18281506 (Version 1)
Quarter: 2020Q3

REPORT INFORMATION
  Report Type: Spontaneous
  Country: GU (occurrence: GU)
  Receive Date: 20200918
  Receipt Date: 20200918
  Transmission Date: 20201103
  Serious: Yes (Other)
  Sender: FDA-Public Use
  Company Number: None

PATIENT
  Age: 28 Year
  Sex: Female
  Weight: 101 kg

DRUGS (11)
  1. SODIUM BICARBONATE. [Concomitant]
     Active Substance: SODIUM BICARBONATE
     Dates: start: 20200914, end: 20200917
  2. FUROSEMIDE. [Concomitant]
     Active Substance: FUROSEMIDE
     Dates: start: 20200913, end: 20200913
  3. REMDESIVIR. [Suspect]
     Active Substance: REMDESIVIR
     Indication: COVID-19 PNEUMONIA
     Route: 042
     Dates: start: 20200913, end: 20200915
  4. THIAMINE. [Concomitant]
     Active Substance: THIAMINE
     Dates: start: 20200909, end: 20200917
  5. GENTAMICIN. [Concomitant]
     Active Substance: GENTAMICIN
     Dates: start: 20200911, end: 20200913
  6. AZITHROMYCIN ANHYDROUS. [Concomitant]
     Active Substance: AZITHROMYCIN ANHYDROUS
     Dates: start: 20200913, end: 20200917
  7. SENNA/DOCUSATE [Concomitant]
     Dates: start: 20200913, end: 20200918
  8. PANTOPRAZOLE [Concomitant]
     Active Substance: PANTOPRAZOLE
     Dates: start: 20200909, end: 20200918
  9. ZINC GLUCONATE [Concomitant]
     Active Substance: ZINC GLUCONATE
     Dates: start: 20200909, end: 20200917
  10. DEXAMETHASONE. [Concomitant]
     Active Substance: DEXAMETHASONE
     Dates: start: 20200913, end: 20200918
  11. MAGNESIUM SULFATE. [Concomitant]
     Active Substance: MAGNESIUM SULFATE
     Dates: start: 20200913, end: 20200913

REACTIONS (2)
  - Therapy cessation [None]
  - Liver function test increased [None]

NARRATIVE: CASE EVENT DATE: 20200915
